FAERS Safety Report 8600142-0 (Version None)
Quarter: 2012Q3

REPORT INFORMATION
  Report Type: 
  Country: None (occurrence: None)
  Receive Date: 20120817
  Receipt Date: 20120813
  Transmission Date: 20120928
  Serious: Yes (Hospitalization)
  Sender: FDA-Public Use
  Company Number: ES-AMGEN-ESPSP2012050757

PATIENT
  Age: 77 Year
  Sex: Female

DRUGS (7)
  1. PROLIA [Suspect]
     Indication: OSTEOPOROSIS
     Dosage: 60 MG, Q6MO
     Dates: start: 20120618
  2. ATORVASTATIN [Concomitant]
  3. TEVETENS [Concomitant]
     Dosage: 600 MG, UNK
  4. ARANESP [Concomitant]
     Dosage: 20 MG, QWK
  5. FUROSEMIDE [Concomitant]
  6. VESICARE [Concomitant]
     Dosage: 5 MG, UNK
  7. TARGIN [Concomitant]

REACTIONS (3)
  - ELECTROCARDIOGRAM ABNORMAL [None]
  - MUSCLE DISORDER [None]
  - HYPOCALCAEMIA [None]
